FAERS Safety Report 24440772 (Version 2)
Quarter: 2024Q4

REPORT INFORMATION
  Report Type: Report from Study
  Country: BY (occurrence: BY)
  Receive Date: 20241016
  Receipt Date: 20241017
  Transmission Date: 20250114
  Serious: No
  Sender: ROCHE
  Company Number: BY-ROCHE-3319438

PATIENT
  Age: 5 Year
  Sex: Male
  Weight: 14.8 kg

DRUGS (5)
  1. EMICIZUMAB [Suspect]
     Active Substance: EMICIZUMAB
     Indication: Factor VIII deficiency
     Dosage: ON 02/JAN/2023, HE RECEIVED MOST RECENT DOSE OF EMICIZUMAB.
     Route: 058
     Dates: start: 20210824
  2. EMICIZUMAB [Suspect]
     Active Substance: EMICIZUMAB
     Route: 058
     Dates: start: 20221128
  3. COAGULATION FACTOR VIIA RECOMBINANT HUMAN [Suspect]
     Active Substance: COAGULATION FACTOR VIIA RECOMBINANT HUMAN
     Indication: Factor VIII deficiency
     Route: 042
     Dates: start: 20201217, end: 20210823
  4. ACETAMINOPHEN [Concomitant]
     Active Substance: ACETAMINOPHEN
     Indication: Pyrexia
     Route: 048
     Dates: start: 20230107, end: 20230110
  5. CLEMASTINE [Concomitant]
     Active Substance: CLEMASTINE
     Route: 042
     Dates: start: 20221212, end: 20221212

REACTIONS (1)
  - COVID-19 [Recovered/Resolved]

NARRATIVE: CASE EVENT DATE: 20230107
